FAERS Safety Report 6511270-8 (Version None)
Quarter: 2009Q4

REPORT INFORMATION
  Report Type: 
  Country: None (occurrence: None)
  Receive Date: 20091222
  Receipt Date: 20090402
  Transmission Date: 20100525
  Serious: Yes (Hospitalization)
  Sender: FDA-Public Use
  Company Number: US-ASTRAZENECA-2009UW07224

PATIENT
  Age: 52 Year
  Sex: Male

DRUGS (13)
  1. CRESTOR [Suspect]
     Indication: HYPERCHOLESTEROLAEMIA
     Route: 048
     Dates: start: 20080714, end: 20081219
  2. PRILOSEC [Concomitant]
     Indication: GASTROOESOPHAGEAL REFLUX DISEASE
     Route: 048
  3. NAPROSYN [Concomitant]
     Indication: PAIN
  4. GLUCOPHAGE [Concomitant]
     Indication: DIABETES MELLITUS
  5. MOBIC [Concomitant]
     Indication: PAIN
  6. BYSTOLIC [Concomitant]
     Indication: HYPERTENSION
  7. JANUVIA [Concomitant]
     Indication: DIABETES MELLITUS
  8. ACTOS [Concomitant]
     Indication: DIABETES MELLITUS
  9. EXFORGE [Concomitant]
     Indication: HYPERTENSION
     Dosage: 5/320 DAILY
  10. LASIX [Concomitant]
     Indication: HYPERTENSION
  11. AVINZA [Concomitant]
     Indication: PAIN
  12. DUONEB [Concomitant]
     Indication: CHRONIC OBSTRUCTIVE PULMONARY DISEASE
  13. DUONEB [Concomitant]
     Indication: ASTHMA

REACTIONS (1)
  - RHABDOMYOLYSIS [None]
